FAERS Safety Report 5123542-2 (Version None)
Quarter: 2006Q3

REPORT INFORMATION
  Report Type: 
  Country: None (occurrence: None)
  Receive Date: 20060801
  Receipt Date: 20050627
  Transmission Date: 20061208
  Serious: Yes (Other)
  Sender: FDA-Public Use
  Company Number: 2005006547

PATIENT
  Age: 42 Year
  Sex: Female
  Weight: 80.2867 kg

DRUGS (11)
  1. CAMPTOSAR [Suspect]
     Indication: RECTAL CANCER
     Dosage: 650 MG (650 MG)
  2. KYTRIL [Concomitant]
  3. DECADRON [Concomitant]
  4. ATROPINE [Concomitant]
  5. COMPAZINE [Concomitant]
  6. LOPERAMIDE HCL [Concomitant]
  7. ZOFRAN [Concomitant]
  8. MULTIVITAMIN [Concomitant]
  9. ELAVIL [Concomitant]
  10. OXYCODONE HCL [Concomitant]
  11. OXYCONTIN [Concomitant]

REACTIONS (3)
  - METASTASIS [None]
  - PULMONARY EMBOLISM [None]
  - TONGUE DISORDER [None]
